FAERS Safety Report 18432474 (Version 2)
Quarter: 2020Q4

REPORT INFORMATION
  Report Type: Spontaneous
  Country: US (occurrence: US)
  Receive Date: 20201027
  Receipt Date: 20201103
  Transmission Date: 20210114
  Serious: Yes (Other)
  Sender: FDA-Public Use
  Company Number: US-TEVA-2020-US-1842093

PATIENT
  Age: 7 Decade
  Sex: Female

DRUGS (6)
  1. LOPERAMIDE [Suspect]
     Active Substance: LOPERAMIDE
     Indication: DIARRHOEA
     Route: 065
  2. ANASTROZOLE. [Concomitant]
     Active Substance: ANASTROZOLE
     Indication: INVASIVE DUCTAL BREAST CARCINOMA
     Dosage: FOR 5 YEARS
     Route: 065
  3. TAMOXIFEN [Suspect]
     Active Substance: TAMOXIFEN
     Indication: INVASIVE DUCTAL BREAST CARCINOMA
     Dosage: FOR 2 YEARS
     Route: 065
  4. LETROZOLE. [Concomitant]
     Active Substance: LETROZOLE
     Indication: INVASIVE DUCTAL BREAST CARCINOMA
     Dosage: FOR 5 YEARS
     Route: 065
  5. CHOLESTYRAMINE. [Suspect]
     Active Substance: CHOLESTYRAMINE
     Indication: PRURITUS
     Dosage: 1 DAY
     Route: 065
  6. EXEMESTANE. [Suspect]
     Active Substance: EXEMESTANE
     Indication: INVASIVE DUCTAL BREAST CARCINOMA
     Route: 065

REACTIONS (4)
  - Drug ineffective [Unknown]
  - Depression [Unknown]
  - Hot flush [Unknown]
  - Cholestatic liver injury [Recovered/Resolved]
